FAERS Safety Report 17292244 (Version 1)
Quarter: 2020Q1

REPORT INFORMATION
  Report Type: Spontaneous
  Country: TW (occurrence: TW)
  Receive Date: 20200121
  Receipt Date: 20200121
  Transmission Date: 20200409
  Serious: Yes (Other)
  Sender: FDA-Public Use
  Company Number: TW-BAYER-2019-225460

PATIENT
  Age: 48 Year
  Sex: Female

DRUGS (1)
  1. YASMIN [Suspect]
     Active Substance: DROSPIRENONE\ETHINYL ESTRADIOL
     Dosage: UNK
     Route: 048
     Dates: start: 2009, end: 201910

REACTIONS (5)
  - Withdrawal bleed [Recovered/Resolved]
  - Pulmonary embolism [Recovering/Resolving]
  - Chest pain [Recovering/Resolving]
  - Menstruation delayed [Not Recovered/Not Resolved]
  - Chest discomfort [Recovering/Resolving]

NARRATIVE: CASE EVENT DATE: 201910
